FAERS Safety Report 7629824-4 (Version None)
Quarter: 2011Q3

REPORT INFORMATION
  Report Type: 
  Country: None (occurrence: None)
  Receive Date: 20110722
  Receipt Date: 20110717
  Transmission Date: 20111222
  Serious: Yes (Other)
  Sender: FDA-Public Use
  Company Number: DE-GENZYME-FLUD-1001224

PATIENT
  Age: 10 Year
  Sex: Male

DRUGS (13)
  1. MELPHALAN HYDROCHLORIDE [Suspect]
     Indication: STEM CELL TRANSPLANT
     Dosage: 70 MG/M2, UNK
     Route: 065
  2. YTTRIUM (90 Y) [Suspect]
     Indication: LIVER DISORDER
  3. MELPHALAN HYDROCHLORIDE [Suspect]
     Indication: CRYPTOSPORIDIOSIS INFECTION
  4. FLUDARA [Suspect]
     Indication: STEM CELL TRANSPLANT
     Dosage: 160 MG/M2, UNK
     Route: 065
  5. INDIUM (111 IN) [Suspect]
     Indication: STEM CELL TRANSPLANT
     Dosage: 71 +/- 28 MBQ, ONCE
     Route: 042
  6. YTTRIUM (90 Y) [Suspect]
     Indication: CRYPTOSPORIDIOSIS INFECTION
  7. YTTRIUM (90 Y) [Suspect]
     Indication: STEM CELL TRANSPLANT
     Dosage: UNK UNK, ONCE
     Route: 042
  8. INDIUM (111 IN) [Suspect]
     Indication: LIVER DISORDER
  9. CYCLOSPORINE [Concomitant]
     Indication: PROPHYLAXIS AGAINST GRAFT VERSUS HOST DISEASE
     Dosage: UNK
     Route: 065
  10. FLUDARA [Suspect]
     Indication: LIVER DISORDER
  11. MELPHALAN HYDROCHLORIDE [Suspect]
     Indication: LIVER DISORDER
  12. FLUDARA [Suspect]
     Indication: CRYPTOSPORIDIOSIS INFECTION
  13. INDIUM (111 IN) [Suspect]
     Indication: CRYPTOSPORIDIOSIS INFECTION

REACTIONS (3)
  - CHOLESTASIS [None]
  - PYREXIA [None]
  - GASTROINTESTINAL DISORDER [None]
